FAERS Safety Report 5258123-3 (Version None)
Quarter: 2007Q1

REPORT INFORMATION
  Report Type: 
  Country: None (occurrence: None)
  Receive Date: 20070307
  Receipt Date: 20070224
  Transmission Date: 20070707
  Serious: Yes (Hospitalization)
  Sender: FDA-Public Use
  Company Number: IN-PFIZER INC-2007015043

PATIENT
  Age: 25 Year
  Sex: Male
  Weight: 45 kg

DRUGS (1)
  1. DOLONEX [Suspect]
     Indication: PAIN
     Route: 030
     Dates: start: 20070223, end: 20070223

REACTIONS (3)
  - LOSS OF CONSCIOUSNESS [None]
  - TETANY [None]
  - VOMITING [None]
